FAERS Safety Report 5176065-9 (Version None)
Quarter: 2006Q4

REPORT INFORMATION
  Report Type: 
  Country: None (occurrence: None)
  Receive Date: 20061215
  Receipt Date: 20060702
  Transmission Date: 20070319
  Serious: No
  Sender: FDA-Public Use
  Company Number: US-AMGEN-KDL185013

PATIENT
  Sex: Female

DRUGS (1)
  1. ENBREL [Suspect]
     Indication: PSORIASIS
     Route: 058
     Dates: start: 20060128

REACTIONS (4)
  - AMENORRHOEA [None]
  - BLOOD URINE PRESENT [None]
  - HOT FLUSH [None]
  - METRORRHAGIA [None]
